FAERS Safety Report 6945584-4 (Version None)
Quarter: 2010Q3

REPORT INFORMATION
  Report Type: 
  Country: None (occurrence: None)
  Receive Date: 20100819
  Receipt Date: 20100807
  Transmission Date: 20110219
  Serious: Yes (Hospitalization, Other)
  Sender: FDA-Public Use
  Company Number: 2010AP001698

PATIENT
  Age: 55 Year
  Sex: Male

DRUGS (3)
  1. FOSPHENYTOIN SODIUM [Suspect]
     Indication: CONVULSION PROPHYLAXIS
     Dosage: 1 GM
  2. PHENYTOIN [Suspect]
     Dosage: 100 MG; TID
  3. ESOMEPRAZOLE MAGNESIUM [Suspect]
     Dosage: 40 MG; BID

REACTIONS (6)
  - DRUG INTERACTION [None]
  - HYPOTENSION [None]
  - ISCHAEMIC HEPATITIS [None]
  - PLATELET TOXICITY [None]
  - RENAL FAILURE ACUTE [None]
  - THROMBOCYTOPENIA [None]
